FAERS Safety Report 8653656 (Version 6)
Quarter: 2012Q4

REPORT INFORMATION
  Report Type: 
  Country: CA (occurrence: CA)
  Receive Date: 20120709
  Receipt Date: 20120910
  Transmission Date: 20130627
  Serious: Yes (Death, Hospitalization, Other)
  Sender: FDA-Public Use
  Company Number: PHHY2012CA047819

PATIENT
  Age: 44 Year
  Sex: Female

DRUGS (1)
  1. ZOMETA [Suspect]
     Indication: BREAST CANCER METASTATIC
     Dosage: 4 mg every 4 weeks
     Route: 042
     Dates: start: 20120202, end: 20120830

REACTIONS (11)
  - Death [Fatal]
  - Pulmonary embolism [Unknown]
  - Fracture [Unknown]
  - Contusion [Unknown]
  - Blood pressure diastolic decreased [Unknown]
  - Pollakiuria [Unknown]
  - Dyspnoea exertional [Unknown]
  - Arthralgia [Unknown]
  - Groin pain [Unknown]
  - Dyspnoea [Unknown]
  - Musculoskeletal stiffness [Unknown]
